FAERS Safety Report 5225192-6 (Version None)
Quarter: 2007Q1

REPORT INFORMATION
  Report Type: 
  Country: None (occurrence: None)
  Receive Date: 20070131
  Receipt Date: 20070124
  Transmission Date: 20070707
  Serious: Yes (Hospitalization)
  Sender: FDA-Public Use
  Company Number: ES-AVENTIS-200710715GDDC

PATIENT
  Age: 78 Year
  Sex: Female

DRUGS (8)
  1. AMARYL [Suspect]
     Indication: DIABETES MELLITUS
     Route: 048
     Dates: start: 19990101, end: 20060421
  2. DIANBEN [Suspect]
     Route: 048
     Dates: start: 19990101, end: 20060421
  3. OMEPRAZOLE [Concomitant]
  4. FUROSEMIDA [Concomitant]
     Route: 048
  5. LERCADIP                           /01366401/ [Concomitant]
     Route: 048
  6. DIGOXIN [Concomitant]
  7. COZAAR [Concomitant]
     Route: 048
  8. TROMALYT [Concomitant]
     Route: 048

REACTIONS (3)
  - DYSPNOEA [None]
  - HYPOGLYCAEMIA [None]
  - VOMITING [None]
